FAERS Safety Report 7142459-5 (Version None)
Quarter: 2010Q4

REPORT INFORMATION
  Report Type: 
  Country: None (occurrence: None)
  Receive Date: 20101207
  Receipt Date: 20101129
  Transmission Date: 20110411
  Serious: No
  Sender: FDA-Public Use
  Company Number: US-PFIZER INC-2010161186

PATIENT
  Sex: Female

DRUGS (2)
  1. DETROL [Suspect]
  2. DITROPAN [Suspect]

REACTIONS (1)
  - DRUG INEFFECTIVE [None]
